FAERS Safety Report 9482737 (Version 2)
Quarter: 2013Q4

REPORT INFORMATION
  Report Type: Spontaneous
  Country: US (occurrence: US)
  Receive Date: 20130828
  Receipt Date: 20131004
  Transmission Date: 20140711
  Serious: No
  Sender: FDA-Public Use
  Company Number: US-PFIZER INC-2013244848

PATIENT
  Sex: Female

DRUGS (2)
  1. TOVIAZ [Suspect]
     Indication: HYPERTONIC BLADDER
     Dosage: 8 MG, UNK
     Dates: end: 20130726
  2. TOVIAZ [Suspect]
     Dosage: 4 MG, UNK
     Dates: start: 20130726

REACTIONS (4)
  - Pain [Unknown]
  - Urinary incontinence [Unknown]
  - Drug ineffective [Unknown]
  - Wrong technique in drug usage process [Unknown]
